FAERS Safety Report 24804508 (Version 2)
Quarter: 2025Q1

REPORT INFORMATION
  Report Type: Report from Study
  Country: US (occurrence: US)
  Receive Date: 20250103
  Receipt Date: 20250116
  Transmission Date: 20250408
  Serious: Yes (Other)
  Sender: BAYER HEALTHCARE PHARMACEUTICALS INC.
  Company Number: US-BAYER-2024A184174

PATIENT
  Age: 48 Year
  Sex: Male

DRUGS (5)
  1. STIVARGA [Suspect]
     Active Substance: REGORAFENIB MONOHYDRATE
     Indication: Colon cancer
     Dosage: 80 MG, QD
     Route: 048
     Dates: start: 20241213
  2. STIVARGA [Suspect]
     Active Substance: REGORAFENIB MONOHYDRATE
     Indication: Colon cancer
     Dosage: 120 MG, QD
     Route: 048
     Dates: end: 20241224
  3. STIVARGA [Suspect]
     Active Substance: REGORAFENIB MONOHYDRATE
     Indication: Colon cancer
     Dosage: 40 MG, QD
     Route: 048
     Dates: start: 20250105, end: 20250107
  4. STIVARGA [Suspect]
     Active Substance: REGORAFENIB MONOHYDRATE
     Indication: Colon cancer
     Dosage: 80 MG, QD
     Route: 048
     Dates: start: 20250108
  5. LONSURF [Concomitant]
     Active Substance: TIPIRACIL HYDROCHLORIDE\TRIFLURIDINE

REACTIONS (5)
  - Pain in extremity [Recovering/Resolving]
  - Weight bearing difficulty [Recovering/Resolving]
  - Dysstasia [Unknown]
  - Gait disturbance [Recovering/Resolving]
  - Product use issue [None]

NARRATIVE: CASE EVENT DATE: 20241213
